FAERS Safety Report 12615542 (Version 3)
Quarter: 2016Q3

REPORT INFORMATION
  Report Type: Spontaneous
  Country: US (occurrence: US)
  Receive Date: 20160802
  Receipt Date: 20160901
  Transmission Date: 20161109
  Serious: Yes (Other)
  Sender: FDA-Public Use
  Company Number: ALCN2016US005250

PATIENT
  Age: 67 Year
  Sex: Female

DRUGS (4)
  1. TEARS NATURALE FREE [Suspect]
     Active Substance: DEXTRAN 70\HYPROMELLOSE 2910 (4000 MPA.S)
     Indication: LACRIMAL DISORDER
     Dosage: 1 GTT, QD (6 TO 8 DAILY AS NEEDED)
     Route: 047
     Dates: start: 20160721, end: 20160726
  2. TOBRADEX [Suspect]
     Active Substance: DEXAMETHASONE\TOBRAMYCIN
     Indication: PRODUCT USED FOR UNKNOWN INDICATION
     Route: 047
  3. TEARS NATURALE FREE [Suspect]
     Active Substance: DEXTRAN 70\HYPROMELLOSE 2910 (4000 MPA.S)
     Indication: OCULAR PEMPHIGOID
  4. GENTEAL MILD [Suspect]
     Active Substance: HYPROMELLOSE 2910 (4000 MPA.S)
     Indication: DRY EYE
     Dosage: 1-2 GTT, PRN
     Route: 047
     Dates: start: 201607, end: 20160724

REACTIONS (3)
  - Foreign body sensation in eyes [Recovering/Resolving]
  - Foreign body in eye [Recovering/Resolving]
  - Eye pain [Recovering/Resolving]

NARRATIVE: CASE EVENT DATE: 20160721
